FAERS Safety Report 10013513 (Version 2)
Quarter: 2014Q2

REPORT INFORMATION
  Report Type: Spontaneous
  Country: US (occurrence: US)
  Receive Date: 20140314
  Receipt Date: 20140410
  Transmission Date: 20141212
  Serious: No
  Sender: FDA-Public Use
  Company Number: US-009507513-1403USA006639

PATIENT
  Age: 70 Year
  Sex: Male

DRUGS (1)
  1. JANUVIA [Suspect]
     Indication: TYPE 2 DIABETES MELLITUS
     Dosage: HALF PILL, 1 DAILY
     Route: 048
     Dates: start: 201311

REACTIONS (3)
  - Prostatomegaly [Unknown]
  - Pollakiuria [Recovered/Resolved with Sequelae]
  - Wrong technique in drug usage process [Unknown]
